FAERS Safety Report 5048876-1 (Version None)
Quarter: 2006Q3

REPORT INFORMATION
  Report Type: 
  Country: None (occurrence: None)
  Receive Date: 20060712
  Receipt Date: 20050616
  Transmission Date: 20061208
  Serious: No
  Sender: FDA-Public Use
  Company Number: US-GLAXOSMITHKLINE-A0563010A

PATIENT
  Age: 30 Year
  Sex: Female

DRUGS (1)
  1. IMITREX [Suspect]
     Indication: MIGRAINE
     Dosage: 50MG VARIABLE DOSE
     Route: 048

REACTIONS (4)
  - DYSPNOEA [None]
  - FACE OEDEMA [None]
  - FLUSHING [None]
  - SWELLING FACE [None]
